FAERS Safety Report 10157306 (Version 1)
Quarter: 2014Q2

REPORT INFORMATION
  Report Type: Spontaneous
  Country: US (occurrence: US)
  Receive Date: 20140507
  Receipt Date: 20140507
  Transmission Date: 20141212
  Serious: No
  Sender: FDA-Public Use
  Company Number: US-009507513-1405USA000429

PATIENT
  Age: 19 Year
  Sex: Female
  Weight: 88.44 kg

DRUGS (2)
  1. NEXPLANON [Suspect]
     Indication: CONTRACEPTION
     Dosage: 1 ROD/ 3 YEARS
     Route: 059
     Dates: start: 20140207, end: 20140429
  2. KLONOPIN [Concomitant]
     Dosage: 0.5 MG, UNK

REACTIONS (2)
  - Unintended pregnancy [Unknown]
  - Weight increased [Unknown]
